FAERS Safety Report 8795670 (Version 1)
Quarter: 2012Q4

REPORT INFORMATION
  Report Type: 
  Country: US (occurrence: US)
  Receive Date: 20120920
  Receipt Date: 20120920
  Transmission Date: 20130627
  Serious: Yes (Hospitalization)
  Sender: FDA-Public Use
  Company Number: US-AMGEN-USASP2012059176

PATIENT
  Age: 62 Year
  Sex: Female

DRUGS (3)
  1. ENBREL [Suspect]
     Indication: RHEUMATOID ARTHRITIS
     Dosage: 50 mg, qwk
     Route: 058
     Dates: start: 20060301, end: 20120718
  2. METHOTREXATE [Concomitant]
     Dosage: 17.5 UNK, UNK
     Dates: start: 2009
  3. PREDNISONE [Concomitant]
     Dosage: 7.5 UNK, UNK
     Dates: start: 1992

REACTIONS (3)
  - Diverticulitis [Not Recovered/Not Resolved]
  - Rheumatoid arthritis [Not Recovered/Not Resolved]
  - Herpes zoster [Not Recovered/Not Resolved]
